FAERS Safety Report 8829874 (Version 2)
Quarter: 2012Q4

REPORT INFORMATION
  Report Type: 
  Country: IT (occurrence: IT)
  Receive Date: 20121008
  Receipt Date: 20121009
  Transmission Date: 20130627
  Serious: Yes (Life-Threatening, Other)
  Sender: FDA-Public Use
  Company Number: IT-ASTRAZENECA-2012SE76009

PATIENT
  Age: 27939 Day
  Sex: Female

DRUGS (3)
  1. BRILIQUE [Suspect]
     Indication: ANGIOPLASTY
     Route: 048
     Dates: start: 20120928
  2. NITROSORBIDE [Concomitant]
  3. FLECTADOL [Concomitant]

REACTIONS (3)
  - Bradycardia [Recovered/Resolved with Sequelae]
  - Cardiac arrest [Recovered/Resolved with Sequelae]
  - Atrioventricular block complete [Unknown]
